FAERS Safety Report 11576367 (Version 3)
Quarter: 2015Q4

REPORT INFORMATION
  Report Type: Spontaneous
  Country: FR (occurrence: FR)
  Receive Date: 20150930
  Receipt Date: 20151030
  Transmission Date: 20160304
  Serious: Yes (Death)
  Sender: FDA-Public Use
  Company Number: FR-BRACCO-001957

PATIENT
  Age: 81 Year
  Sex: Male

DRUGS (9)
  1. KARDEGIC [Concomitant]
     Active Substance: ASPIRIN LYSINE
  2. BISOPROLOL [Concomitant]
     Active Substance: BISOPROLOL
  3. SERETIDE [Concomitant]
     Active Substance: FLUTICASONE FUROATE\SALMETEROL XINAFOATE
  4. LASILIX [Concomitant]
     Active Substance: FUROSEMIDE
     Dosage: 40 G5 + MG
  5. BRILIQUE [Concomitant]
     Active Substance: TICAGRELOR
     Dosage: X 2
  6. RAMIPRIL. [Concomitant]
     Active Substance: RAMIPRIL
  7. SONOVUE [Suspect]
     Active Substance: SULFUR HEXAFLUORIDE
     Indication: ECHOCARDIOGRAM
     Route: 042
     Dates: start: 20150916, end: 20150916
  8. ATORVASTATIN [Concomitant]
     Active Substance: ATORVASTATIN
  9. CORDARONE [Concomitant]
     Active Substance: AMIODARONE HYDROCHLORIDE

REACTIONS (1)
  - Cardiac arrest [Fatal]

NARRATIVE: CASE EVENT DATE: 20150916
